FAERS Safety Report 6857158-4 (Version None)
Quarter: 2010Q3

REPORT INFORMATION
  Report Type: 
  Country: None (occurrence: None)
  Receive Date: 20100719
  Receipt Date: 20091109
  Transmission Date: 20110219
  Serious: No
  Sender: FDA-Public Use
  Company Number: US-KINGPHARMUSA00001-K200901402

PATIENT
  Sex: Female
  Weight: 54.422 kg

DRUGS (5)
  1. LEVOXYL [Suspect]
     Indication: HYPOTHYROIDISM
     Dosage: 50 MCG, QD
     Dates: start: 20091001, end: 20091106
  2. SPIRIVA [Concomitant]
     Indication: ASTHMA
     Dosage: UNK
  3. ADVAIR DISKUS 100/50 [Concomitant]
     Indication: ASTHMA
     Dosage: UNK
  4. FOSAMAX [Concomitant]
     Indication: OSTEOPOROSIS
  5. BONIVA [Concomitant]
     Indication: OSTEOPOROSIS
     Dosage: UNK

REACTIONS (2)
  - PRURITUS [None]
  - RASH [None]
